FAERS Safety Report 12281165 (Version 22)
Quarter: 2020Q1

REPORT INFORMATION
  Report Type: Spontaneous
  Country: US (occurrence: US)
  Receive Date: 20160419
  Receipt Date: 20200318
  Transmission Date: 20200409
  Serious: Yes (Hospitalization, Other)
  Sender: FDA-Public Use
  Company Number: US-PFIZER INC-2016208390

PATIENT
  Age: 63 Year
  Sex: Female
  Weight: 82 kg

DRUGS (8)
  1. OMEPRAZOLE. [Concomitant]
     Active Substance: OMEPRAZOLE
     Dosage: 40 MG, ONCE DAILY
     Route: 048
  2. NORTRIPTYLINE [Concomitant]
     Active Substance: NORTRIPTYLINE
     Indication: ANTIDEPRESSANT THERAPY
     Dosage: 30 MG, DAILY (20 MG IN MORNING, 10 MG AT NIGHT)
     Dates: start: 2015
  3. NORTRIPTYLINE [Concomitant]
     Active Substance: NORTRIPTYLINE
     Dosage: 20 MG, TWICE DAILY (NIGHT AND DAY)
     Route: 048
     Dates: start: 20160411
  4. LYRICA [Suspect]
     Active Substance: PREGABALIN
     Indication: DIABETIC NEUROPATHY
     Dosage: 300 MG, TWICE DAILY
     Route: 048
     Dates: start: 20160422
  5. OMEPRAZOLE. [Concomitant]
     Active Substance: OMEPRAZOLE
     Indication: DYSPEPSIA
     Dosage: 40 MG, AS NEEDED
     Route: 048
     Dates: start: 2013
  6. NORTRIPTYLINE [Concomitant]
     Active Substance: NORTRIPTYLINE
     Indication: PAIN
     Dosage: 10 MG, TWICE DAILY
     Route: 048
  7. LYRICA [Suspect]
     Active Substance: PREGABALIN
     Indication: NEUROPATHY PERIPHERAL
     Dosage: 300 MG, TWICE DAILY
     Route: 048
     Dates: start: 2014, end: 20160408
  8. LYRICA [Suspect]
     Active Substance: PREGABALIN
     Dosage: 300 MG, TWICE DAILY
     Route: 048

REACTIONS (10)
  - Drug withdrawal syndrome [Not Recovered/Not Resolved]
  - Drug dependence [Not Recovered/Not Resolved]
  - Hot flush [Unknown]
  - Insomnia [Not Recovered/Not Resolved]
  - Nightmare [Recovered/Resolved]
  - Feeling abnormal [Unknown]
  - Pruritus [Recovered/Resolved]
  - Drug ineffective [Recovered/Resolved]
  - Hyperhidrosis [Not Recovered/Not Resolved]
  - Mental disorder [Unknown]

NARRATIVE: CASE EVENT DATE: 20160410
